FAERS Safety Report 4583761-0 (Version None)
Quarter: 2005Q1

REPORT INFORMATION
  Report Type: 
  Country: None (occurrence: None)
  Receive Date: 20050211
  Receipt Date: 20050203
  Transmission Date: 20050727
  Serious: Yes (Other)
  Sender: FDA-Public Use
  Company Number: K200500188

PATIENT
  Age: 28 Year
  Sex: Female

DRUGS (4)
  1. SKELAXIN [Suspect]
     Indication: ARTHRALGIA
     Dosage: 800 MG, TID, ORAL
     Route: 048
     Dates: start: 20050103, end: 20050103
  2. HYDROCODONE [Concomitant]
  3. ALLEGRA-D [Concomitant]
  4. PRILOSEC [Concomitant]

REACTIONS (1)
  - ANAPHYLACTIC REACTION [None]
